FAERS Safety Report 13417849 (Version 1)
Quarter: 2017Q2

REPORT INFORMATION
  Report Type: Spontaneous
  Country: US (occurrence: US)
  Receive Date: 20170406
  Receipt Date: 20170406
  Transmission Date: 20170830
  Serious: No
  Sender: FDA-Public Use
  Company Number: US-ALLERGAN-1654149US

PATIENT
  Sex: Male

DRUGS (3)
  1. BUDESONIDE. [Suspect]
     Active Substance: BUDESONIDE
     Indication: COLITIS ULCERATIVE
     Route: 065
  2. CANASA [Suspect]
     Active Substance: MESALAMINE
     Indication: COLITIS ULCERATIVE
     Route: 054
  3. HUMIRA [Suspect]
     Active Substance: ADALIMUMAB
     Indication: COLITIS ULCERATIVE
     Dosage: 40 MG, Q2WEEKS
     Route: 058
     Dates: start: 201405

REACTIONS (6)
  - Drug ineffective [Unknown]
  - Flatulence [Unknown]
  - Rectal haemorrhage [Unknown]
  - Headache [Unknown]
  - Colitis ulcerative [Unknown]
  - Anal incontinence [Not Recovered/Not Resolved]
